FAERS Safety Report 8346341 (Version 2)
Quarter: 2012Q4

REPORT INFORMATION
  Report Type: Report from Study
  Country: JP (occurrence: JP)
  Receive Date: 20120120
  Receipt Date: 20121231
  Transmission Date: 20130627
  Serious: Yes (Other)
  Sender: FDA-Public Use
  Company Number: PHHY2012JP004477

PATIENT
  Sex: Female
  Weight: 22 kg

DRUGS (8)
  1. ACZ885 [Suspect]
     Indication: CHRONIC INFANTILE NEUROLOGICAL CUTANEOUS AND ARTICULAR SYNDROME
     Dosage: 44 mg, daily
     Route: 058
     Dates: start: 20120112, end: 20120112
  2. ACZ885 [Suspect]
     Dosage: 88 mg, daily
     Route: 058
     Dates: start: 20120113, end: 20120113
  3. ACZ885 [Suspect]
     Dosage: 132 mg, daily
     Route: 048
     Dates: start: 20120127, end: 20120127
  4. ACZ885 [Suspect]
     Dosage: 150 mg, daily
     Route: 048
     Dates: start: 20120224, end: 20120224
  5. ACZ885 [Suspect]
     Dosage: 184 mg, daily
     Route: 048
     Dates: start: 20120330, end: 20120330
  6. ACZ885 [Suspect]
     Dosage: 240 mg, daily
     Route: 058
     Dates: start: 20120427, end: 20120427
  7. ACZ885 [Suspect]
     Dosage: 300 mg, daily
     Route: 058
     Dates: start: 20120524, end: 20120524
  8. ACZ885 [Suspect]
     Dosage: 300 mg, daily
     Route: 058
     Dates: start: 20120622, end: 20120622

REACTIONS (5)
  - White blood cell count increased [Unknown]
  - C-reactive protein increased [Unknown]
  - Body temperature increased [Unknown]
  - Rash [Unknown]
  - Drug ineffective [Unknown]
